FAERS Safety Report 23839317 (Version 2)
Quarter: 2024Q2

REPORT INFORMATION
  Report Type: Report from Study
  Country: JP (occurrence: JP)
  Receive Date: 20240509
  Receipt Date: 20240521
  Transmission Date: 20240715
  Serious: Yes (Hospitalization)
  Sender: FDA-Public Use
  Company Number: JP-ABBVIE-22K-087-4520628-00

PATIENT
  Age: 59 Year
  Sex: Female

DRUGS (3)
  1. CARBIDOPA\LEVODOPA [Suspect]
     Active Substance: CARBIDOPA\LEVODOPA
     Indication: Parkinson^s disease
     Dosage: LAST ADMINISTRATION DATE: 2022
     Route: 050
     Dates: start: 20220716
  2. CARBIDOPA\LEVODOPA [Suspect]
     Active Substance: CARBIDOPA\LEVODOPA
     Route: 050
     Dates: start: 20220811
  3. CARBIDOPA\LEVODOPA [Suspect]
     Active Substance: CARBIDOPA\LEVODOPA
     Route: 050

REACTIONS (11)
  - Renal neoplasm [Unknown]
  - Stoma site pain [Recovered/Resolved]
  - Therapeutic product effect incomplete [Unknown]
  - Stoma site extravasation [Recovered/Resolved]
  - Medical device site pain [Unknown]
  - Dyskinesia [Unknown]
  - Malaise [Not Recovered/Not Resolved]
  - Stoma site discharge [Unknown]
  - Nausea [Unknown]
  - Product storage error [Unknown]
  - Stoma site erythema [Unknown]

NARRATIVE: CASE EVENT DATE: 20220902
